FAERS Safety Report 9454700 (Version 3)
Quarter: 2013Q3

REPORT INFORMATION
  Report Type: Spontaneous
  Country: US (occurrence: None)
  Receive Date: 20130808
  Receipt Date: 20130916
  Transmission Date: 20140515
  Serious: Yes (Hospitalization)
  Sender: FDA-Public Use
  Company Number: 150120

PATIENT
  Age: 67 Year
  Sex: Female
  Weight: 83 kg

DRUGS (1)
  1. LEUCOVORIN CALCIUM [Suspect]
     Indication: COLORECTAL CANCER METASTATIC
     Dosage: DAY ONE EVERY 14 DAYS
     Route: 042
     Dates: start: 20130111

REACTIONS (7)
  - Diarrhoea [None]
  - Pyrexia [None]
  - Dehydration [None]
  - Blood creatinine increased [None]
  - Abdominal pain [None]
  - Platelet count decreased [None]
  - Gastroenteritis salmonella [None]
